FAERS Safety Report 15421830 (Version 1)
Quarter: 2018Q3

REPORT INFORMATION
  Report Type: Spontaneous
  Country: US (occurrence: US)
  Receive Date: 20180924
  Receipt Date: 20180924
  Transmission Date: 20181010
  Serious: No
  Sender: FDA-Public Use
  Company Number: US-ALLERGAN-1837813US

PATIENT
  Age: 70 Year
  Sex: Female
  Weight: 61.22 kg

DRUGS (3)
  1. ARMOUR THYROID [Concomitant]
     Active Substance: THYROID, PORCINE
     Indication: THYROIDECTOMY
     Dosage: 90 MG, UNK
     Route: 048
  2. VALIUM [Concomitant]
     Active Substance: DIAZEPAM
     Dosage: UNK
     Route: 065
  3. LINZESS [Suspect]
     Active Substance: LINACLOTIDE
     Indication: CONSTIPATION
     Dosage: 290 ?G, QD
     Route: 048
     Dates: start: 20180722

REACTIONS (3)
  - Abdominal pain upper [Unknown]
  - Off label use [Unknown]
  - Drug ineffective for unapproved indication [Unknown]
